FAERS Safety Report 4627651-3 (Version None)
Quarter: 2005Q2

REPORT INFORMATION
  Report Type: 
  Country: None (occurrence: None)
  Receive Date: 20050401
  Receipt Date: 20050325
  Transmission Date: 20051028
  Serious: Yes (Life-Threatening, Hospitalization)
  Sender: FDA-Public Use
  Company Number: 2005US000394

PATIENT
  Age: 27 Year
  Sex: Female

DRUGS (9)
  1. AMBISOME [Suspect]
     Indication: ASPERGILLOSIS
     Dosage: 300.00 MG, UID/QD, INTRAVENOUS
     Route: 042
     Dates: start: 20041222
  2. LOVENOX (HEPARIN-FRACTION, SODUM SALT) [Concomitant]
  3. NEXIUM [Concomitant]
  4. PERFALGAN [Concomitant]
  5. MORPHINE [Concomitant]
  6. TERCIAN (CYAMEMAZINE) [Concomitant]
  7. CIPROFLOXACIN HCL [Concomitant]
  8. CLAVENTIN (TICARCILLIN DISODIUM, CLAVULANATE POTASSIUM) [Concomitant]
  9. VANCOMYCIN [Concomitant]

REACTIONS (3)
  - HYPOKALAEMIA [None]
  - HYPOMAGNESAEMIA [None]
  - RENAL TUBULAR DISORDER [None]
